FAERS Safety Report 4745045-7 (Version None)
Quarter: 2005Q3

REPORT INFORMATION
  Report Type: 
  Country: None (occurrence: None)
  Receive Date: 20050815
  Receipt Date: 20050811
  Transmission Date: 20060218
  Serious: Yes (Life-Threatening)
  Sender: FDA-Public Use
  Company Number: 2005CG01376

PATIENT
  Age: 60 Year
  Sex: Male

DRUGS (1)
  1. NAROPIN [Suspect]
     Indication: LOCAL ANAESTHESIA
     Route: 053
     Dates: start: 20050727, end: 20050727

REACTIONS (6)
  - CARDIAC ARREST [None]
  - CONVULSION [None]
  - CYANOSIS [None]
  - JUGULAR VEIN DISTENSION [None]
  - OXYGEN SATURATION DECREASED [None]
  - VENTRICULAR FIBRILLATION [None]
